FAERS Safety Report 25808856 (Version 2)
Quarter: 2025Q3

REPORT INFORMATION
  Report Type: Spontaneous
  Country: EU (occurrence: EU)
  Receive Date: 20250916
  Receipt Date: 20250930
  Transmission Date: 20251021
  Serious: Yes (Congenital Anomaly)
  Sender: ABBVIE
  Company Number: None

PATIENT
  Sex: Male
  Weight: 3.5 kg

DRUGS (6)
  1. CITALOPRAM [Suspect]
     Active Substance: CITALOPRAM
     Indication: Anxiety
     Dosage: ONCE A DAY?STRENGTH 10 MILLIGRAM
     Route: 064
     Dates: start: 2023
  2. METOCLOPRAMIDE [Suspect]
     Active Substance: METOCLOPRAMIDE
     Indication: Morning sickness
     Dosage: 1 PIECE 3 TIMES A DAY
     Route: 064
     Dates: start: 20241128
  3. METOCLOPRAMIDE [Suspect]
     Active Substance: METOCLOPRAMIDE
     Indication: Morning sickness
     Route: 064
  4. ZOFRAN [Suspect]
     Active Substance: ONDANSETRON HYDROCHLORIDE
     Indication: Maternal exposure timing unspecified
     Dosage: 1 PIECE 3 TIMES A DAY
     Route: 064
     Dates: start: 20241217
  5. PANTOPRAZOLE SODIUM [Suspect]
     Active Substance: PANTOPRAZOLE SODIUM
     Indication: Maternal exposure timing unspecified
     Route: 064
     Dates: start: 202405
  6. SYMBICORT [Suspect]
     Active Substance: BUDESONIDE\FORMOTEROL FUMARATE DIHYDRATE
     Indication: Asthma
     Dosage: 2 X 1 DOSE PER DAY?STRENGTH 100/3 MICROGRAM/DOSE
     Route: 064
     Dates: start: 2010

REACTIONS (2)
  - Urethral valves [Not Recovered/Not Resolved]
  - Foetal exposure during pregnancy [Unknown]
